FAERS Safety Report 4373255-X (Version None)
Quarter: 2004Q2

REPORT INFORMATION
  Report Type: 
  Country: None (occurrence: None)
  Receive Date: 20040608
  Receipt Date: 20020319
  Transmission Date: 20050107
  Serious: Yes (Hospitalization)
  Sender: FDA-Public Use
  Company Number: FR-GLAXOSMITHKLINE-B0263843A

PATIENT
  Age: 38 Year
  Sex: Male

DRUGS (8)
  1. COMBIVIR [Suspect]
     Dosage: 300MG TWICE PER DAY
     Route: 048
     Dates: start: 20020129, end: 20020223
  2. KALETRA [Suspect]
     Dosage: 400MG TWICE PER DAY
     Route: 048
     Dates: start: 20020129, end: 20020223
  3. NEURONTIN [Suspect]
     Indication: CONVULSION
     Dosage: 500MG THREE TIMES PER DAY
     Route: 048
     Dates: start: 20020118, end: 20020223
  4. NORVIR [Suspect]
     Route: 048
     Dates: start: 20020501, end: 20020501
  5. MALOCIDE [Concomitant]
     Indication: CEREBRAL TOXOPLASMOSIS
     Dosage: 75MG PER DAY
     Route: 048
     Dates: start: 20011230
  6. ADIAZINE [Concomitant]
     Indication: CEREBRAL TOXOPLASMOSIS
     Dosage: 500MG SIX TIMES PER DAY
     Route: 048
     Dates: start: 20011230
  7. OSFOLATE [Concomitant]
     Indication: CEREBRAL TOXOPLASMOSIS
     Route: 048
     Dates: start: 20011230
  8. URBANYL [Concomitant]
     Route: 048
     Dates: start: 20020118, end: 20020119

REACTIONS (12)
  - ABDOMINAL PAIN UPPER [None]
  - BILIRUBIN CONJUGATED INCREASED [None]
  - BLOOD ALKALINE PHOSPHATASE INCREASED [None]
  - BLOOD AMYLASE INCREASED [None]
  - BLOOD BILIRUBIN INCREASED [None]
  - HEPATITIS CHOLESTATIC [None]
  - JAUNDICE [None]
  - LIPASE INCREASED [None]
  - NEUTROPENIA [None]
  - PANCREATITIS [None]
  - RASH MACULO-PAPULAR [None]
  - TRANSAMINASES INCREASED [None]
